FAERS Safety Report 6120933-8 (Version None)
Quarter: 2009Q1

REPORT INFORMATION
  Report Type: 
  Country: None (occurrence: None)
  Receive Date: 20090312
  Receipt Date: 20090302
  Transmission Date: 20090719
  Serious: Yes (Hospitalization, Other)
  Sender: FDA-Public Use
  Company Number: JPI-P-005920

PATIENT
  Sex: Male
  Weight: 3.416 kg

DRUGS (3)
  1. LUVOX [Suspect]
     Indication: DRUG EXPOSURE DURING PREGNANCY
     Dosage: 25 MG (25 MG,1 IN 1D), TRANSPLACENTAL
     Route: 064
     Dates: start: 20080425, end: 20080519
  2. LUVOX [Suspect]
     Indication: DRUG EXPOSURE DURING PREGNANCY
     Dosage: 25 MG (25 MG,1 IN 1D), TRANSPLACENTAL
     Route: 064
     Dates: start: 20080520, end: 20081013
  3. LUVOX [Suspect]
     Indication: DRUG EXPOSURE DURING PREGNANCY
     Dosage: 25 MG (25 MG,1 IN 1D), TRANSPLACENTAL
     Route: 064
     Dates: start: 20081014, end: 20081020

REACTIONS (7)
  - CAESAREAN SECTION [None]
  - CEPHALO-PELVIC DISPROPORTION [None]
  - DRUG EXPOSURE DURING PREGNANCY [None]
  - FOETAL DISORDER [None]
  - MATERNAL DRUGS AFFECTING FOETUS [None]
  - NEONATAL ASPHYXIA [None]
  - PREMATURE RUPTURE OF MEMBRANES [None]
